FAERS Safety Report 14555868 (Version 1)
Quarter: 2018Q1

REPORT INFORMATION
  Report Type: Spontaneous
  Country: US (occurrence: US)
  Receive Date: 20180221
  Receipt Date: 20180221
  Transmission Date: 20180509
  Serious: Yes (Other)
  Sender: FDA-Public Use
  Company Number: US-AMGEN-USASP2018021331

PATIENT
  Sex: Female

DRUGS (2)
  1. PROLIA [Suspect]
     Active Substance: DENOSUMAB
     Indication: PRODUCT USED FOR UNKNOWN INDICATION
     Dosage: UNK
     Route: 065
     Dates: start: 201703
  2. FORTEO [Concomitant]
     Active Substance: TERIPARATIDE
     Dosage: UNK

REACTIONS (7)
  - Decreased immune responsiveness [Not Recovered/Not Resolved]
  - Weight increased [Not Recovered/Not Resolved]
  - Sinusitis [Recovered/Resolved]
  - Hip arthroplasty [Unknown]
  - Discomfort [Not Recovered/Not Resolved]
  - Dyspnoea [Not Recovered/Not Resolved]
  - Spinal fracture [Unknown]

NARRATIVE: CASE EVENT DATE: 2017
